FAERS Safety Report 4297090-6 (Version None)
Quarter: 2004Q1

REPORT INFORMATION
  Report Type: 
  Country: None (occurrence: None)
  Receive Date: 20040126
  Receipt Date: 20030903
  Transmission Date: 20041129
  Serious: No
  Sender: FDA-Public Use
  Company Number: USA030946072

PATIENT
  Age: 15 Year
  Sex: Female
  Weight: 64 kg

DRUGS (2)
  1. STRATTERA [Suspect]
     Indication: ATTENTION DEFICIT/HYPERACTIVITY DISORDER
     Dosage: 60MG/1 IN THE MORNING
     Dates: start: 20030808, end: 20030825
  2. FLUOXETINE HCL [Concomitant]

REACTIONS (4)
  - DEPRESSED MOOD [None]
  - DIZZINESS [None]
  - PSYCHOMOTOR HYPERACTIVITY [None]
  - TREMOR [None]
